FAERS Safety Report 8805711 (Version 1)
Quarter: 2012Q4

REPORT INFORMATION
  Report Type: Report from Study
  Country: CN (occurrence: CN)
  Receive Date: 20120924
  Receipt Date: 20120924
  Transmission Date: 20130627
  Serious: Yes (Other)
  Sender: FDA-Public Use
  Company Number: CN-ROCHE-1132242

PATIENT
  Sex: Male

DRUGS (3)
  1. CELLCEPT [Suspect]
     Indication: RENAL TRANSPLANT
     Dosage: 0.5g once, 0.75g once
     Route: 048
     Dates: start: 20020228, end: 201203
  2. CICLOSPORIN [Concomitant]
     Indication: RENAL TRANSPLANT
     Route: 048
  3. STEROID NOS [Concomitant]
     Indication: RENAL TRANSPLANT
     Route: 048

REACTIONS (1)
  - Renal graft loss [Not Recovered/Not Resolved]
